FAERS Safety Report 23221911 (Version 3)
Quarter: 2024Q3

REPORT INFORMATION
  Report Type: Report from Study
  Country: US (occurrence: US)
  Receive Date: 20231123
  Receipt Date: 20240815
  Transmission Date: 20241017
  Serious: Yes (Other)
  Sender: TAKEDA
  Company Number: US-TAKEDA-2023TUS113369

PATIENT
  Age: 53 Year
  Sex: Male

DRUGS (2)
  1. HEMOFIL [Suspect]
     Active Substance: ANTIHEMOPHILIC FACTOR HUMAN
     Indication: Haemorrhage
     Dosage: 3800 INTERNATIONAL UNIT
     Route: 042
  2. HEMOFIL [Suspect]
     Active Substance: ANTIHEMOPHILIC FACTOR HUMAN
     Dosage: 3800 INTERNATIONAL UNIT
     Route: 065

REACTIONS (4)
  - Haemarthrosis [Unknown]
  - Muscle haemorrhage [Unknown]
  - Groin pain [Unknown]
  - Cough [Unknown]

NARRATIVE: CASE EVENT DATE: 20231120
